FAERS Safety Report 11439573 (Version 1)
Quarter: 2015Q3

REPORT INFORMATION
  Report Type: Spontaneous
  Country: US (occurrence: US)
  Receive Date: 20150901
  Receipt Date: 20150901
  Transmission Date: 20151125
  Serious: No
  Sender: FDA-Public Use
  Company Number: US-ROCHE-1013834

PATIENT
  Sex: Female

DRUGS (5)
  1. LANTUS [Concomitant]
     Active Substance: INSULIN GLARGINE
  2. METFORMIN [Concomitant]
     Active Substance: METFORMIN HYDROCHLORIDE
  3. RIBASPHERE [Suspect]
     Active Substance: RIBAVIRIN
     Indication: CHRONIC HEPATITIS C
     Dosage: DAILY DIVIDED DOSES
     Route: 048
     Dates: start: 20111115
  4. PEGASYS [Suspect]
     Active Substance: PEGINTERFERON ALFA-2A
     Indication: CHRONIC HEPATITIS C
     Route: 065
     Dates: start: 20111115
  5. TELAPREVIR [Suspect]
     Active Substance: TELAPREVIR
     Indication: CHRONIC HEPATITIS C
     Route: 065
     Dates: start: 20111115, end: 20120206

REACTIONS (12)
  - Vomiting [Unknown]
  - Pruritus [Unknown]
  - Hepatitis C [Unknown]
  - Rash erythematous [Unknown]
  - Anaemia [Unknown]
  - Headache [Not Recovered/Not Resolved]
  - Chills [Unknown]
  - Blood glucose increased [Unknown]
  - Nausea [Recovering/Resolving]
  - Night sweats [Unknown]
  - Pain [Unknown]
  - Decreased appetite [Unknown]
